FAERS Safety Report 5600956-5 (Version None)
Quarter: 2008Q1

REPORT INFORMATION
  Report Type: 
  Country: None (occurrence: None)
  Receive Date: 20080124
  Receipt Date: 20080116
  Transmission Date: 20080703
  Serious: Yes (Other)
  Sender: FDA-Public Use
  Company Number: PHEH2008US00942

PATIENT
  Age: 63 Year
  Sex: Female
  Weight: 75.283 kg

DRUGS (3)
  1. AVASTIN [Concomitant]
  2. TAXOL [Concomitant]
  3. ZOMETA [Suspect]
     Dosage: 4 MG, QMO
     Dates: start: 20061127

REACTIONS (3)
  - ORAL PAIN [None]
  - OSTEONECROSIS [None]
  - PAIN IN JAW [None]
